FAERS Safety Report 21360275 (Version 2)
Quarter: 2023Q2

REPORT INFORMATION
  Report Type: Spontaneous
  Country: US (occurrence: US)
  Receive Date: 20220921
  Receipt Date: 20230608
  Transmission Date: 20230721
  Serious: No
  Sender: FDA-Public Use
  Company Number: US-PHARMAESSENTIA CORPORATION-US-2022-PEC-000685

PATIENT

DRUGS (8)
  1. BESREMI [Suspect]
     Active Substance: ROPEGINTERFERON ALFA-2B-NJFT
     Indication: Polycythaemia vera
     Dosage: 150 MCG, EVERY TWO WEEKS
     Route: 058
     Dates: start: 20220101
  2. BESREMI [Suspect]
     Active Substance: ROPEGINTERFERON ALFA-2B-NJFT
     Dosage: 400 MCG
     Route: 058
  3. BESREMI [Suspect]
     Active Substance: ROPEGINTERFERON ALFA-2B-NJFT
     Dosage: 350 MCG
     Route: 058
  4. BESREMI [Suspect]
     Active Substance: ROPEGINTERFERON ALFA-2B-NJFT
     Dosage: 200 MCG
     Route: 058
  5. ERRIN [Concomitant]
     Active Substance: NORETHINDRONE
     Indication: Product used for unknown indication
     Dosage: 0.35 MG
     Route: 048
  6. NARATRIPTAN [Concomitant]
     Active Substance: NARATRIPTAN HYDROCHLORIDE
     Indication: Product used for unknown indication
     Dosage: 1 MG
     Route: 065
  7. NORTRIPTYLINE [Concomitant]
     Active Substance: NORTRIPTYLINE
     Indication: Product used for unknown indication
     Dosage: 10 MG
     Route: 065
  8. VITAMIN D NOS [Concomitant]
     Active Substance: VITAMIN D NOS
     Indication: Product used for unknown indication
     Dosage: 25 MCG
     Route: 065

REACTIONS (3)
  - Liquid product physical issue [Unknown]
  - Bronchitis [Unknown]
  - White blood cell count decreased [Unknown]

NARRATIVE: CASE EVENT DATE: 20220828
